FAERS Safety Report 12455333 (Version 1)
Quarter: 2016Q2

REPORT INFORMATION
  Report Type: Spontaneous
  Country: US (occurrence: None)
  Receive Date: 20160609
  Receipt Date: 20160609
  Transmission Date: 20160815
  Serious: Yes (Hospitalization)
  Sender: FDA-Public Use
  Company Number: None

PATIENT
  Age: 28 Year
  Sex: Female
  Weight: 76.7 kg

DRUGS (3)
  1. EPHEDRINE. [Suspect]
     Active Substance: EPHEDRINE
  2. EPHEDRINE ADULT EPI-PEN [Suspect]
     Active Substance: EPHEDRINE
  3. IOHEXOL [Suspect]
     Active Substance: IOHEXOL

REACTIONS (3)
  - Incorrect dose administered [None]
  - Swollen tongue [None]
  - Throat tightness [None]
